FAERS Safety Report 4730586-9 (Version None)
Quarter: 2005Q3

REPORT INFORMATION
  Report Type: 
  Country: None (occurrence: None)
  Receive Date: 20050725
  Receipt Date: 20050315
  Transmission Date: 20060218
  Serious: No
  Sender: FDA-Public Use
  Company Number: USA050393299

PATIENT
  Age: 46 Year
  Sex: Female

DRUGS (3)
  1. STRATTERA [Suspect]
     Indication: ATTENTION DEFICIT/HYPERACTIVITY DISORDER
     Dosage: 40 MG IN THE EVENING
     Dates: start: 20050510
  2. LEXAPRO [Concomitant]
  3. XANAX(ALPRAZOLAM DUM) [Concomitant]

REACTIONS (5)
  - AGITATION [None]
  - DRY MOUTH [None]
  - NOCTURIA [None]
  - SLEEP DISORDER [None]
  - THIRST [None]
